FAERS Safety Report 6609512-3 (Version None)
Quarter: 2010Q1

REPORT INFORMATION
  Report Type: 
  Country: None (occurrence: None)
  Receive Date: 20100302
  Receipt Date: 20100222
  Transmission Date: 20100710
  Serious: Yes (Hospitalization, Other)
  Sender: FDA-Public Use
  Company Number: JP-JNJFOC-20100209338

PATIENT
  Age: 64 Year
  Sex: Female

DRUGS (3)
  1. ITRIZOLE [Suspect]
     Indication: INFECTION PROPHYLAXIS
     Route: 048
  2. ACLACINON [Suspect]
     Indication: LEUKAEMIA
     Route: 065
  3. CYLOCIDE [Suspect]
     Indication: LEUKAEMIA
     Route: 065

REACTIONS (3)
  - ELECTROCARDIOGRAM QT PROLONGED [None]
  - VENTRICULAR FIBRILLATION [None]
  - VENTRICULAR TACHYCARDIA [None]
